FAERS Safety Report 7282865-1 (Version None)
Quarter: 2011Q1

REPORT INFORMATION
  Report Type: 
  Country: None (occurrence: None)
  Receive Date: 20110209
  Receipt Date: 20110207
  Transmission Date: 20110831
  Serious: Yes (Other)
  Sender: FDA-Public Use
  Company Number: JP-PFIZER INC-2011027407

PATIENT
  Age: 75 Year
  Sex: Female

DRUGS (2)
  1. SELARA [Suspect]
     Route: 048
  2. ASPIRIN [Concomitant]

REACTIONS (2)
  - HEPATIC FUNCTION ABNORMAL [None]
  - HAEMOLYTIC ANAEMIA [None]
